FAERS Safety Report 7378897-5 (Version None)
Quarter: 2011Q1

REPORT INFORMATION
  Report Type: 
  Country: None (occurrence: None)
  Receive Date: 20110328
  Receipt Date: 20110322
  Transmission Date: 20110831
  Serious: Yes (Hospitalization)
  Sender: FDA-Public Use
  Company Number: GB-B.I. PHARMACEUTICALS,INC./RIDGEFIELD-2011-UK-00328UK

PATIENT

DRUGS (2)
  1. TRANSAMIC ACID [Concomitant]
  2. PRADAXA [Suspect]

REACTIONS (1)
  - WOUND SECRETION [None]
